FAERS Safety Report 5093649-7 (Version None)
Quarter: 2006Q3

REPORT INFORMATION
  Report Type: 
  Country: None (occurrence: None)
  Receive Date: 20060829
  Receipt Date: 20060815
  Transmission Date: 20061208
  Serious: Yes (Other)
  Sender: FDA-Public Use
  Company Number: T100600906

PATIENT
  Age: 67 Year
  Sex: Male

DRUGS (2)
  1. OPTIMARK [Suspect]
     Indication: NUCLEAR MAGNETIC RESONANCE IMAGING
     Dosage: SEE IMAGE
     Dates: start: 20050723, end: 20050723
  2. OPTIMARK [Suspect]
     Indication: NUCLEAR MAGNETIC RESONANCE IMAGING
     Dosage: SEE IMAGE
     Dates: start: 20050725, end: 20050725

REACTIONS (2)
  - NEPHROGENIC FIBROSING DERMOPATHY [None]
  - PERITONEAL DIALYSIS [None]
